FAERS Safety Report 21884099 (Version 2)
Quarter: 2023Q1

REPORT INFORMATION
  Report Type: Report from Study
  Country: CL (occurrence: CL)
  Receive Date: 20230119
  Receipt Date: 20230201
  Transmission Date: 20230418
  Serious: Yes (Hospitalization, Other)
  Sender: FDA-Public Use
  Company Number: CL-002147023-NVSC2022CL119576

PATIENT
  Age: 75 Year
  Sex: Female

DRUGS (3)
  1. KISQALI [Suspect]
     Active Substance: RIBOCICLIB
     Indication: Breast cancer
     Dosage: 600 MG, QD
     Route: 048
     Dates: start: 20220307
  2. FULVESTRANT [Suspect]
     Active Substance: FULVESTRANT
     Indication: Product used for unknown indication
     Dosage: UNK
     Route: 065
  3. CAPECITABINE [Suspect]
     Active Substance: CAPECITABINE
     Indication: Product used for unknown indication
     Dosage: UNK, QW
     Route: 065

REACTIONS (10)
  - COVID-19 [Unknown]
  - Pleural effusion [Unknown]
  - Dysphonia [Unknown]
  - Hepatic neoplasm [Unknown]
  - Hypersensitivity [Unknown]
  - Pruritus [Unknown]
  - Feeling abnormal [Unknown]
  - Colitis [Unknown]
  - Vomiting [Unknown]
  - Drug ineffective [Unknown]
